FAERS Safety Report 8873016 (Version 2)
Quarter: 2012Q4

REPORT INFORMATION
  Report Type: 
  Country: US (occurrence: US)
  Receive Date: 20121029
  Receipt Date: 20121105
  Transmission Date: 20130627
  Serious: Yes (Hospitalization)
  Sender: FDA-Public Use
  Company Number: US-AMGEN-USASP2012068153

PATIENT
  Sex: Male

DRUGS (1)
  1. ENBREL [Suspect]
     Indication: PSORIASIS
     Dosage: 50 mg, 2 times/wk
     Dates: start: 20080218

REACTIONS (4)
  - Nerve compression [Recovered/Resolved]
  - Neuralgia [Recovered/Resolved]
  - Speech disorder [Recovered/Resolved]
  - Psoriasis [Not Recovered/Not Resolved]
